FAERS Safety Report 8566567 (Version 4)
Quarter: 2012Q4

REPORT INFORMATION
  Report Type: Report from Study
  Country: JP (occurrence: JP)
  Receive Date: 20120517
  Receipt Date: 20121105
  Transmission Date: 20130627
  Serious: Yes (Hospitalization, Other)
  Sender: FDA-Public Use
  Company Number: JP-US-EMD SERONO, INC.-7131423

PATIENT
  Sex: Female
  Weight: 55 kg

DRUGS (7)
  1. GONAL-F RFF PEN [Suspect]
     Indication: OVULATION INDUCTION
     Route: 058
     Dates: start: 20111031, end: 20111109
  2. GONAL-F RFF PEN [Suspect]
     Indication: ANOVULATORY CYCLE
     Route: 058
     Dates: start: 20111127, end: 20111201
  3. GONAL-F RFF PEN [Suspect]
     Route: 058
     Dates: start: 20111202, end: 20111207
  4. HCG [Concomitant]
     Indication: OVULATION INDUCTION
     Dates: start: 20111208, end: 20111208
  5. HCG [Concomitant]
     Indication: ANOVULATORY CYCLE
  6. PLANOVAR [Concomitant]
     Indication: PRODUCT USED FOR UNKNOWN INDICATION
     Route: 048
     Dates: start: 20111110, end: 20111119
  7. DUPHASTON [Concomitant]
     Indication: PRODUCT USED FOR UNKNOWN INDICATION
     Dosage: 3 tablets a day
     Route: 048
     Dates: start: 20111212, end: 20111221

REACTIONS (3)
  - Ovarian hyperstimulation syndrome [Recovering/Resolving]
  - Abortion spontaneous [Recovering/Resolving]
  - Twin pregnancy [Recovered/Resolved]
